FAERS Safety Report 25247173 (Version 4)
Quarter: 2025Q3

REPORT INFORMATION
  Report Type: Report from Study
  Country: US (occurrence: US)
  Receive Date: 20250428
  Receipt Date: 20250825
  Transmission Date: 20251021
  Serious: No
  Sender: SUNOVION
  Company Number: US-SUMITOMO PHARMA SWITZERLAND GMBH-2025SPA004067

PATIENT
  Age: 66 Year
  Sex: Male

DRUGS (9)
  1. ORGOVYX [Suspect]
     Active Substance: RELUGOLIX
     Indication: Prostate cancer
     Dosage: 360 MG, SINGLE
     Route: 048
     Dates: start: 20250226, end: 20250226
  2. ORGOVYX [Suspect]
     Active Substance: RELUGOLIX
     Dosage: 120 MG, QD
     Route: 048
     Dates: start: 20250227
  3. CIPROFLOXACIN [Concomitant]
     Active Substance: CIPROFLOXACIN
  4. CLARITIN [Concomitant]
     Active Substance: LORATADINE
  5. METOPROLOL [Concomitant]
     Active Substance: METOPROLOL
  6. VITAMINS [Concomitant]
     Active Substance: VITAMINS
  7. ROSUVASTATIN [Concomitant]
     Active Substance: ROSUVASTATIN
  8. TYLENOL EXTRA STRENGTH [Concomitant]
     Active Substance: ACETAMINOPHEN
  9. VITAMIN D3 [Concomitant]
     Active Substance: CHOLECALCIFEROL

REACTIONS (5)
  - Hypersensitivity [Unknown]
  - Dyspepsia [Unknown]
  - Flushing [Unknown]
  - Hot flush [Unknown]
  - Fatigue [Unknown]
